FAERS Safety Report 18321791 (Version 1)
Quarter: 2020Q3

REPORT INFORMATION
  Report Type: Spontaneous
  Country: IN (occurrence: IN)
  Receive Date: 20200928
  Receipt Date: 20200928
  Transmission Date: 20201103
  Serious: Yes (Hospitalization, Other)
  Sender: FDA-Public Use
  Company Number: IN-LUPIN PHARMACEUTICALS INC.-2020-06474

PATIENT
  Age: 23 Year
  Sex: Female

DRUGS (1)
  1. ETHAMBUTOL [Suspect]
     Active Substance: ETHAMBUTOL HYDROCHLORIDE
     Indication: MENINGITIS TUBERCULOUS
     Dosage: UNK (THE DAILY DOSE OF ETHAMBUTOL WAS 15 MG/KG)
     Route: 065

REACTIONS (3)
  - Optic neuropathy [Recovering/Resolving]
  - Ocular toxicity [Recovering/Resolving]
  - Blindness [Recovering/Resolving]
